FAERS Safety Report 5671242-2 (Version None)
Quarter: 2008Q1

REPORT INFORMATION
  Report Type: 
  Country: None (occurrence: None)
  Receive Date: 20080313
  Receipt Date: 20080306
  Transmission Date: 20080703
  Serious: Yes (Hospitalization, Other)
  Sender: FDA-Public Use
  Company Number: 013795

PATIENT
  Age: 30 Year
  Sex: Male

DRUGS (5)
  1. CARBAMAZEPINE [Suspect]
     Indication: CEREBELLAR ATROPHY
     Dosage: 200 MG, TID,
  2. CARBAMAZEPINE [Suspect]
     Indication: CONVULSION
     Dosage: 200 MG, TID,
  3. THIORIDAZINE HCL [Suspect]
     Indication: CEREBELLAR ATROPHY
     Dosage: 75 MG, QHS,
  4. THIORIDAZINE HCL [Suspect]
     Indication: CONVULSION
     Dosage: 75 MG, QHS,
  5. CHARCOAL, ACTIVATED(CHARCOAL, ACTIVATED) [Suspect]
     Dosage: 30 G-60 G, Q4HR,

REACTIONS (9)
  - ACCIDENTAL OVERDOSE [None]
  - DEPRESSED LEVEL OF CONSCIOUSNESS [None]
  - DYSARTHRIA [None]
  - HEPATOSPLENOMEGALY [None]
  - ILEUS [None]
  - INTESTINAL OBSTRUCTION [None]
  - LETHARGY [None]
  - PNEUMONIA ASPIRATION [None]
  - TACHYCARDIA [None]
